FAERS Safety Report 19923879 (Version 2)
Quarter: 2022Q1

REPORT INFORMATION
  Report Type: Other
  Country: JP (occurrence: JP)
  Receive Date: 20211006
  Receipt Date: 20220323
  Transmission Date: 20220424
  Serious: Yes (Hospitalization, Other)
  Sender: FDA-Public Use
  Company Number: JP-CHUGAI-2021020927

PATIENT
  Age: 67 Year
  Sex: Female
  Weight: 40.9 kg

DRUGS (7)
  1. ATEZOLIZUMAB [Suspect]
     Active Substance: ATEZOLIZUMAB
     Indication: Small cell lung cancer extensive stage
     Route: 041
     Dates: start: 20210225, end: 2021
  2. ATEZOLIZUMAB [Suspect]
     Active Substance: ATEZOLIZUMAB
     Dosage: 1200 MILLIGRAM
     Route: 041
     Dates: start: 2021, end: 20211005
  3. CARBOPLATIN [Suspect]
     Active Substance: CARBOPLATIN
     Indication: Small cell lung cancer extensive stage
     Dosage: 500 MILLIGRAM, QD
     Route: 041
     Dates: start: 20210225, end: 20210225
  4. CARBOPLATIN [Suspect]
     Active Substance: CARBOPLATIN
     Dosage: MOST RECENT DOSE RECEIVED ON 11/MAY/2021.
     Route: 041
     Dates: start: 20210323
  5. ETOPOSIDE [Suspect]
     Active Substance: ETOPOSIDE
     Indication: Small cell lung cancer extensive stage
     Dosage: 125 MILLIGRAM
     Route: 041
     Dates: start: 20210225, end: 20210227
  6. ETOPOSIDE [Suspect]
     Active Substance: ETOPOSIDE
     Dosage: MOST RECENT DOSE RECEIVED ON 13/MAY/2021
     Route: 041
     Dates: start: 20210323
  7. METHIMAZOLE [Suspect]
     Active Substance: METHIMAZOLE
     Indication: Product used for unknown indication
     Route: 065

REACTIONS (8)
  - Hyponatraemia [Recovered/Resolved]
  - Inappropriate antidiuretic hormone secretion [Not Recovered/Not Resolved]
  - Hypokalaemia [Not Recovered/Not Resolved]
  - Neutrophil count decreased [Recovered/Resolved]
  - Hepatic function abnormal [Recovered/Resolved]
  - Oral disorder [Recovered/Resolved]
  - C-reactive protein increased [Recovered/Resolved]
  - Constipation [Recovered/Resolved]

NARRATIVE: CASE EVENT DATE: 20210228
